FAERS Safety Report 24208912 (Version 4)
Quarter: 2024Q4

REPORT INFORMATION
  Report Type: Spontaneous
  Country: AR (occurrence: AR)
  Receive Date: 20240814
  Receipt Date: 20241230
  Transmission Date: 20250115
  Serious: No
  Sender: PFIZER
  Company Number: AR-PFIZER INC-202400230449

PATIENT
  Age: 5 Year
  Sex: Male

DRUGS (1)
  1. GENOTROPIN [Suspect]
     Active Substance: SOMATROPIN
     Indication: Growth hormone deficiency
     Dosage: 0.9 MG, 6 TIMES PER WEEK
     Dates: start: 20220519

REACTIONS (3)
  - Device information output issue [Unknown]
  - Device calibration failure [Unknown]
  - Expired device used [Unknown]

NARRATIVE: CASE EVENT DATE: 20240802
